FAERS Safety Report 9379645 (Version 3)
Quarter: 2013Q3

REPORT INFORMATION
  Report Type: Spontaneous
  Country: FR (occurrence: None)
  Receive Date: 20130627
  Receipt Date: 20130827
  Transmission Date: 20140515
  Serious: Yes (Hospitalization)
  Sender: FDA-Public Use
  Company Number: 2013MPI00380

PATIENT
  Age: 64 Year
  Sex: Male

DRUGS (11)
  1. BRENTUXIMAB VEDOTIN [Suspect]
     Indication: ANAPLASTIC LARGE-CELL LYMPHOMA
     Route: 042
     Dates: start: 20130228, end: 20130506
  2. ZELITREX [Concomitant]
  3. MOPRAL (OMEPRAZOLE) [Concomitant]
  4. AGOMELATIN (AGOMELATIN) [Concomitant]
  5. ZYLORIC (ALLOPURINOL) [Concomitant]
  6. IMOVANE (ZOPICLONE) [Concomitant]
  7. WELLVONE (ATOVAQUONE) [Concomitant]
  8. FILGRASTIM (FILGRASTIM) [Concomitant]
  9. ARANESP (DARBEPOETIN ALFA) [Concomitant]
  10. NEULASTA (PEGFILGRASTIM) [Concomitant]
  11. ACUPAN (NEFOPAM HYDROCHLORIDE) [Concomitant]

REACTIONS (4)
  - Febrile bone marrow aplasia [None]
  - Febrile neutropenia [None]
  - Blood culture positive [None]
  - Escherichia test positive [None]
